FAERS Safety Report 25413540 (Version 1)
Quarter: 2025Q2

REPORT INFORMATION
  Report Type: Spontaneous
  Country: US (occurrence: None)
  Receive Date: 20250607
  Receipt Date: 20250607
  Transmission Date: 20250717
  Serious: Yes (Disabling)
  Sender: FDA-CTU
  Company Number: None

PATIENT
  Age: 54 Year
  Sex: Female
  Weight: 72 kg

DRUGS (8)
  1. TYRVAYA [Suspect]
     Active Substance: VARENICLINE TARTRATE
     Indication: Dry eye
     Dosage: FREQUENCY : TWICE A DAY;?
     Route: 045
     Dates: start: 20240201, end: 20241231
  2. LEVOTHYROXINE [Concomitant]
     Active Substance: LEVOTHYROXINE
  3. LEFLUNOMIDE [Concomitant]
     Active Substance: LEFLUNOMIDE
  4. PREDNISONE [Concomitant]
     Active Substance: PREDNISONE
  5. PREDNISONE [Concomitant]
     Active Substance: PREDNISONE
  6. GOLIMUMAB [Concomitant]
     Active Substance: GOLIMUMAB
  7. eZSOPICTONE [Concomitant]
  8. CRANBERRY [Concomitant]
     Active Substance: CRANBERRY

REACTIONS (3)
  - Anosmia [None]
  - Taste disorder [None]
  - Disability [None]

NARRATIVE: CASE EVENT DATE: 20250501
